FAERS Safety Report 15265875 (Version 7)
Quarter: 2019Q3

REPORT INFORMATION
  Report Type: Report from Study
  Country: JP (occurrence: JP)
  Receive Date: 20180810
  Receipt Date: 20190920
  Transmission Date: 20191004
  Serious: Yes (Death, Hospitalization, Other)
  Sender: FDA-Public Use
  Company Number: JP-JNJFOC-20180805572

PATIENT
  Age: 72 Year
  Sex: Male
  Weight: 68 kg

DRUGS (5)
  1. RIVAROXABAN UNSPECIFIED [Concomitant]
     Indication: ATRIAL FIBRILLATION
     Route: 048
     Dates: start: 201302, end: 201706
  2. RIVAROXABAN UNSPECIFIED [Concomitant]
     Route: 048
     Dates: start: 20171012, end: 20171126
  3. IMBRUVICA [Suspect]
     Active Substance: IBRUTINIB
     Route: 048
     Dates: start: 20170927, end: 20171126
  4. IMBRUVICA [Suspect]
     Active Substance: IBRUTINIB
     Route: 048
     Dates: start: 20171220
  5. IMBRUVICA [Suspect]
     Active Substance: IBRUTINIB
     Indication: MANTLE CELL LYMPHOMA REFRACTORY
     Route: 048
     Dates: start: 20170601

REACTIONS (3)
  - Bronchopulmonary aspergillosis [Fatal]
  - Subdural haematoma [Recovered/Resolved]
  - Atrial fibrillation [Not Recovered/Not Resolved]

NARRATIVE: CASE EVENT DATE: 20171014
